FAERS Safety Report 18570742 (Version 1)
Quarter: 2020Q4

REPORT INFORMATION
  Report Type: Spontaneous
  Country: SE (occurrence: SE)
  Receive Date: 20201202
  Receipt Date: 20201202
  Transmission Date: 20210114
  Serious: Yes (Life-Threatening)
  Sender: FDA-Public Use
  Company Number: SE-MYLANLABS-2020M1097353

PATIENT
  Age: 66 Year
  Sex: Male

DRUGS (7)
  1. TADIM [Concomitant]
     Active Substance: COLISTIMETHATE SODIUM
     Indication: PRODUCT USED FOR UNKNOWN INDICATION
     Dosage: UNK
     Route: 065
  2. COLOBREATHE [Concomitant]
     Active Substance: COLISTIMETHATE SODIUM
     Indication: PRODUCT USED FOR UNKNOWN INDICATION
     Dosage: UNK
     Route: 065
  3. NIVESTIM [Concomitant]
     Active Substance: FILGRASTIM
     Indication: PRODUCT USED FOR UNKNOWN INDICATION
     Dosage: UNK
     Route: 065
  4. VALACICLOVIR [Concomitant]
     Active Substance: VALACYCLOVIR HYDROCHLORIDE
     Indication: PRODUCT USED FOR UNKNOWN INDICATION
     Dosage: UNK
     Route: 065
  5. TOBI PODHALER [Suspect]
     Active Substance: TOBRAMYCIN
     Indication: PNEUMONIA PSEUDOMONAL
     Dosage: 112 MILLIGRAM, QD
     Route: 055
     Dates: start: 202004, end: 20201028
  6. DOXYFERM                           /00055705/ [Concomitant]
     Indication: PRODUCT USED FOR UNKNOWN INDICATION
     Dosage: UNK
     Route: 065
  7. CYKLOKAPRON [Concomitant]
     Active Substance: TRANEXAMIC ACID
     Indication: PRODUCT USED FOR UNKNOWN INDICATION
     Dosage: UNK
     Route: 065

REACTIONS (2)
  - Drug level increased [Recovering/Resolving]
  - Renal impairment [Recovering/Resolving]

NARRATIVE: CASE EVENT DATE: 202010
